FAERS Safety Report 9904127 (Version 1)
Quarter: 2014Q1

REPORT INFORMATION
  Report Type: Spontaneous
  Country: US (occurrence: US)
  Receive Date: 20140218
  Receipt Date: 20140218
  Transmission Date: 20141002
  Serious: No
  Sender: FDA-Public Use
  Company Number: US-BIOGENIDEC-2014BI013275

PATIENT
  Age: 52 Year
  Sex: Female

DRUGS (8)
  1. TECFIDERA [Suspect]
     Indication: MULTIPLE SCLEROSIS
     Route: 048
     Dates: start: 20131210
  2. DIOVAN [Concomitant]
  3. HYDROCHLOROTHIAZIDE [Concomitant]
  4. LUMIGAN [Concomitant]
  5. CLONIDINE HCI [Concomitant]
  6. WELLBUTRIN [Concomitant]
  7. XANAX [Concomitant]
  8. BACLOFEN [Concomitant]

REACTIONS (1)
  - Back pain [Unknown]
